FAERS Safety Report 14454075 (Version 1)
Quarter: 2018Q1

REPORT INFORMATION
  Report Type: Spontaneous
  Country: US (occurrence: US)
  Receive Date: 20180129
  Receipt Date: 20180129
  Transmission Date: 20180509
  Serious: No
  Sender: FDA-Public Use
  Company Number: US-PERRIGO-17US002165

PATIENT
  Age: 27 Year
  Sex: Female
  Weight: 79.37 kg

DRUGS (2)
  1. IBUPROFEN AND DIPHENHYDRAMINE CITRATE [Suspect]
     Active Substance: DIPHENHYDRAMINE CITRATE\IBUPROFEN
     Indication: PAIN IN JAW
     Dosage: TWO TABLETS, SINGLE AT 2000
     Route: 048
     Dates: start: 20170204, end: 20170204
  2. IBUPROFEN AND DIPHENHYDRAMINE CITRATE [Suspect]
     Active Substance: DIPHENHYDRAMINE CITRATE\IBUPROFEN
     Indication: INSOMNIA

REACTIONS (4)
  - Expired product administered [Recovered/Resolved]
  - Pyrexia [Recovered/Resolved]
  - Hypersomnia [Recovered/Resolved]
  - Somnolence [Recovered/Resolved]

NARRATIVE: CASE EVENT DATE: 20170204
